FAERS Safety Report 10558840 (Version 1)
Quarter: 2014Q4

REPORT INFORMATION
  Report Type: Spontaneous
  Country: US (occurrence: US)
  Receive Date: 20141101
  Receipt Date: 20141101
  Transmission Date: 20150529
  Serious: Yes (Death, Hospitalization)
  Sender: FDA-Public Use
  Company Number: US-ABBVIE-14K-163-1302232-00

PATIENT
  Age: 42 Year
  Sex: Male

DRUGS (1)
  1. HUMIRA [Suspect]
     Active Substance: ADALIMUMAB
     Indication: PSORIASIS
     Route: 065
     Dates: start: 201010, end: 2012

REACTIONS (4)
  - Infection [Unknown]
  - Gastrointestinal haemorrhage [Fatal]
  - Oesophageal candidiasis [Not Recovered/Not Resolved]
  - Tuberculin test positive [Unknown]

NARRATIVE: CASE EVENT DATE: 201010
